FAERS Safety Report 10671051 (Version 2)
Quarter: 2014Q4

REPORT INFORMATION
  Report Type: Spontaneous
  Country: FR (occurrence: FR)
  Receive Date: 20141223
  Receipt Date: 20141223
  Transmission Date: 20150529
  Serious: Yes (Death, Other)
  Sender: FDA-Public Use
  Company Number: FR-SA-CERZ-1002816

PATIENT
  Sex: Male

DRUGS (1)
  1. CEREZYME [Suspect]
     Active Substance: IMIGLUCERASE
     Indication: GAUCHER^S DISEASE
     Dosage: UNK
     Route: 042
     Dates: start: 20120926, end: 20130111

REACTIONS (9)
  - Dyspnoea [Fatal]
  - Coma [Unknown]
  - Cardio-respiratory arrest [Fatal]
  - Septic shock [Unknown]
  - Hypotension [Fatal]
  - Sepsis [Unknown]
  - Erysipelas [Recovering/Resolving]
  - General physical health deterioration [Fatal]
  - Oxygen saturation abnormal [Fatal]

NARRATIVE: CASE EVENT DATE: 2013
